FAERS Safety Report 8127126-3 (Version None)
Quarter: 2012Q1

REPORT INFORMATION
  Report Type: 
  Country: None (occurrence: None)
  Receive Date: 20120210
  Receipt Date: 20120206
  Transmission Date: 20120608
  Serious: Yes (Hospitalization)
  Sender: FDA-Public Use
  Company Number: KR-BRACCO-000026

PATIENT
  Age: 52 Year
  Sex: Female

DRUGS (3)
  1. MULTIHANCE [Suspect]
     Indication: ANGIOGRAM
     Route: 042
     Dates: start: 20120110, end: 20120110
  2. MULTIHANCE [Suspect]
     Indication: INVESTIGATION
     Route: 042
     Dates: start: 20120110, end: 20120110
  3. INDENOL [Concomitant]
     Indication: COMPUTERISED TOMOGRAM
     Dates: start: 20120101

REACTIONS (2)
  - LOSS OF CONSCIOUSNESS [None]
  - DIZZINESS [None]
